FAERS Safety Report 15598163 (Version 1)
Quarter: 2018Q4

REPORT INFORMATION
  Report Type: Spontaneous
  Country: FR (occurrence: FR)
  Receive Date: 20181108
  Receipt Date: 20181108
  Transmission Date: 20190205
  Serious: Yes (Disabling)
  Sender: FDA-Public Use
  Company Number: FR-LPDUSPRD-20182082

PATIENT
  Age: 30 Year
  Sex: Female

DRUGS (1)
  1. FERINJECT [Suspect]
     Active Substance: FERRIC CARBOXYMALTOSE
     Dosage: 1 GM ( 1 IN 1 TOTAL)
     Route: 042
     Dates: start: 20180525, end: 2018

REACTIONS (3)
  - Extravasation [Recovered/Resolved with Sequelae]
  - Product use in unapproved indication [Unknown]
  - Skin discolouration [Recovered/Resolved with Sequelae]

NARRATIVE: CASE EVENT DATE: 20180525
